FAERS Safety Report 9492937 (Version 1)
Quarter: 2013Q3

REPORT INFORMATION
  Report Type: Spontaneous
  Country: US (occurrence: US)
  Receive Date: 20130902
  Receipt Date: 20130902
  Transmission Date: 20140515
  Serious: No
  Sender: FDA-Public Use
  Company Number: US-009507513-1308USA013252

PATIENT
  Sex: 0

DRUGS (2)
  1. VICTRELIS [Suspect]
     Dosage: UNK
  2. LISINOPRIL [Concomitant]
     Dosage: UNK

REACTIONS (1)
  - Electrolyte imbalance [Unknown]
